FAERS Safety Report 7050607-0 (Version None)
Quarter: 2010Q4

REPORT INFORMATION
  Report Type: 
  Country: None (occurrence: None)
  Receive Date: 20101018
  Receipt Date: 20101007
  Transmission Date: 20110411
  Serious: Yes (Hospitalization, Other)
  Sender: FDA-Public Use
  Company Number: US-ELI_LILLY_AND_COMPANY-US201005000625

PATIENT
  Sex: Male
  Weight: 143 kg

DRUGS (2)
  1. BYETTA [Suspect]
  2. METFORMIN HCL [Concomitant]
     Indication: DIABETES MELLITUS

REACTIONS (3)
  - PANCREATITIS [None]
  - RENAL FAILURE [None]
  - RENAL FAILURE ACUTE [None]
